FAERS Safety Report 9056284 (Version 1)
Quarter: 2013Q1

REPORT INFORMATION
  Report Type: Spontaneous
  Country: US (occurrence: US)
  Receive Date: 20130205
  Receipt Date: 20130205
  Transmission Date: 20140127
  Serious: Yes (Other)
  Sender: FDA-Public Use
  Company Number: US-TEVA-311525USA

PATIENT
  Sex: Female

DRUGS (1)
  1. LABETALOL [Suspect]

REACTIONS (3)
  - Atrial fibrillation [Unknown]
  - Blood pressure increased [Unknown]
  - Drug ineffective [Unknown]
